FAERS Safety Report 8814838 (Version 2)
Quarter: 2012Q4

REPORT INFORMATION
  Report Type: 
  Country: DE (occurrence: DE)
  Receive Date: 20120928
  Receipt Date: 20121228
  Transmission Date: 20130627
  Serious: Yes (Hospitalization)
  Sender: FDA-Public Use
  Company Number: DE-B.I. PHARMACEUTICALS,INC./RIDGEFIELD-2012-DE-02180DE

PATIENT
  Age: 82 Year
  Sex: Male
  Weight: 100 kg

DRUGS (2)
  1. PRADAXA [Suspect]
     Indication: THROMBOSIS
     Dosage: 220 mg
     Route: 048
     Dates: start: 201202, end: 20120315
  2. PRADAXA [Suspect]
     Indication: PULMONARY EMBOLISM

REACTIONS (3)
  - Alanine aminotransferase increased [Not Recovered/Not Resolved]
  - Aspartate aminotransferase increased [Not Recovered/Not Resolved]
  - Gamma-glutamyltransferase increased [Not Recovered/Not Resolved]
